FAERS Safety Report 10538913 (Version 1)
Quarter: 2014Q4

REPORT INFORMATION
  Report Type: Spontaneous
  Country: GB (occurrence: GB)
  Receive Date: 20141023
  Receipt Date: 20141023
  Transmission Date: 20150529
  Serious: Yes (Other)
  Sender: FDA-Public Use
  Company Number: GB-GLAXOSMITHKLINE-GB2014009938

PATIENT

DRUGS (4)
  1. DOXYCYCLINE. [Concomitant]
     Active Substance: DOXYCYCLINE
  2. RAMIPRIL. [Concomitant]
     Active Substance: RAMIPRIL
  3. AVAMYS [Suspect]
     Active Substance: FLUTICASONE FUROATE
     Indication: ACUTE SINUSITIS
     Dosage: ONE SPRAY TO EACH NOSTRIL, TWICE A DAY
     Route: 045
     Dates: start: 20141008, end: 20141008
  4. SALT [Concomitant]
     Active Substance: SODIUM CHLORIDE

REACTIONS (4)
  - Nasal discomfort [Unknown]
  - Cough [Unknown]
  - Throat irritation [Unknown]
  - Choking [Unknown]

NARRATIVE: CASE EVENT DATE: 20141008
